FAERS Safety Report 26083480 (Version 1)
Quarter: 2025Q4

REPORT INFORMATION
  Report Type: Spontaneous
  Country: US (occurrence: US)
  Receive Date: 20251124
  Receipt Date: 20251124
  Transmission Date: 20260117
  Serious: Yes (Other)
  Sender: B. BRAUN MEDICAL INC.
  Company Number: US-B. Braun Medical Inc.-US-BBM-202504483

PATIENT
  Age: 59 Year
  Sex: Female

DRUGS (2)
  1. ACETAMINOPHEN [Suspect]
     Active Substance: ACETAMINOPHEN
     Indication: Overdose
  2. NAPROXEN [Concomitant]
     Active Substance: NAPROXEN

REACTIONS (6)
  - Haematemesis [Recovered/Resolved]
  - Gastrointestinal haemorrhage [Recovered/Resolved]
  - Gastric ulcer [Recovered/Resolved]
  - Intentional overdose [Recovered/Resolved]
  - Toxicity to various agents [Recovered/Resolved]
  - Condition aggravated [Recovered/Resolved]
